FAERS Safety Report 11509292 (Version 2)
Quarter: 2016Q1

REPORT INFORMATION
  Report Type: Spontaneous
  Country: US (occurrence: US)
  Receive Date: 20150915
  Receipt Date: 20160219
  Transmission Date: 20160525
  Serious: Yes (Death, Hospitalization, Other)
  Sender: FDA-Public Use
  Company Number: US-009507513-1509USA007622

PATIENT
  Sex: Female
  Weight: 89.8 kg

DRUGS (9)
  1. JANUVIA [Suspect]
     Active Substance: SITAGLIPTIN PHOSPHATE
     Indication: TYPE 2 DIABETES MELLITUS
     Dosage: 100 MG, ONCE DAILY W/FOOD
     Route: 048
     Dates: end: 20120919
  2. JANUVIA [Suspect]
     Active Substance: SITAGLIPTIN PHOSPHATE
     Dosage: 50 MG, ONCE DAILY
     Route: 048
     Dates: start: 20120210
  3. ZANTAC [Concomitant]
     Active Substance: RANITIDINE HYDROCHLORIDE
     Indication: GASTROOESOPHAGEAL REFLUX DISEASE
     Dosage: 150 MG, BID
     Route: 048
  4. METFORMIN HYDROCHLORIDE. [Concomitant]
     Active Substance: METFORMIN HYDROCHLORIDE
     Indication: TYPE 2 DIABETES MELLITUS
     Dosage: 500 MG, BID W/FOOD
     Route: 048
  5. ATENOLOL. [Concomitant]
     Active Substance: ATENOLOL
     Indication: HYPERTENSIVE HEART DISEASE
     Dosage: 50 MG, ONCE A DAY
     Route: 048
  6. NORVASC [Concomitant]
     Active Substance: AMLODIPINE BESYLATE
     Indication: HYPERTENSIVE HEART DISEASE
     Dosage: 5 MG, ONCE A DAY
     Route: 048
  7. VITAMINS (UNSPECIFIED) [Concomitant]
     Active Substance: VITAMINS
     Dosage: 1 DF, DAILY
     Route: 048
  8. ENALAPRIL [Concomitant]
     Active Substance: ENALAPRIL
     Indication: HYPERTENSIVE HEART DISEASE
     Dosage: 10 MG, ONCE A DAY
     Route: 048
  9. FLUOCINONIDE. [Concomitant]
     Active Substance: FLUOCINONIDE
     Indication: RASH
     Dosage: 0.05 %, TID
     Route: 061

REACTIONS (23)
  - Metastases to lung [Unknown]
  - Hyperlipidaemia [Unknown]
  - Blood glucose decreased [Unknown]
  - Diverticulum intestinal [Unknown]
  - Drug ineffective [Unknown]
  - Metastases to liver [Unknown]
  - Haemorrhagic anaemia [Unknown]
  - Deep vein thrombosis [Unknown]
  - Hypertension [Unknown]
  - Pancreatic carcinoma metastatic [Unknown]
  - Diabetic neuropathy [Unknown]
  - Aortic aneurysm [Unknown]
  - Death [Fatal]
  - Anaemia [Unknown]
  - Osteopenia [Unknown]
  - Gastrointestinal ulcer [Unknown]
  - Pulmonary embolism [Unknown]
  - Gastrointestinal disorder [Unknown]
  - Diabetic nephropathy [Unknown]
  - Skin exfoliation [Unknown]
  - Gastrointestinal haemorrhage [Unknown]
  - Varices oesophageal [Unknown]
  - Hiatus hernia [Unknown]

NARRATIVE: CASE EVENT DATE: 20120210
